FAERS Safety Report 16805836 (Version 1)
Quarter: 2019Q3

REPORT INFORMATION
  Report Type: Spontaneous
  Country: BR (occurrence: BR)
  Receive Date: 20190913
  Receipt Date: 20190913
  Transmission Date: 20191005
  Serious: Yes (Hospitalization, Other)
  Sender: FDA-Public Use
  Company Number: PHHY2019BR212086

PATIENT
  Age: 57 Year
  Sex: Male

DRUGS (2)
  1. NILOTINIB [Suspect]
     Active Substance: NILOTINIB
     Indication: CHRONIC MYELOID LEUKAEMIA
     Dosage: 1 DF, Q12H
     Route: 065
     Dates: end: 201406
  2. NILOTINIB [Suspect]
     Active Substance: NILOTINIB
     Dosage: 400 MG, BID
     Route: 065

REACTIONS (13)
  - Cerebral haemorrhage [Unknown]
  - Wrong technique in product usage process [Unknown]
  - Arrhythmia [Unknown]
  - Dyspnoea exertional [Unknown]
  - Seizure [Unknown]
  - Hyperthyroidism [Unknown]
  - Hypertension [Unknown]
  - Fatigue [Unknown]
  - Post procedural complication [Unknown]
  - Gait disturbance [Unknown]
  - Headache [Unknown]
  - Weight decreased [Unknown]
  - Tracheal stenosis [Unknown]

NARRATIVE: CASE EVENT DATE: 2015
